FAERS Safety Report 16525694 (Version 4)
Quarter: 2019Q4

REPORT INFORMATION
  Report Type: Spontaneous
  Country: US (occurrence: US)
  Receive Date: 20190703
  Receipt Date: 20191202
  Transmission Date: 20200122
  Serious: No
  Sender: FDA-Public Use
  Company Number: US-SA-2019SA178365

PATIENT
  Age: 48 Year
  Sex: Female

DRUGS (1)
  1. KEVZARA [Suspect]
     Active Substance: SARILUMAB
     Indication: PRODUCT USE IN UNAPPROVED INDICATION
     Dosage: 200 MG, QOW
     Route: 058
     Dates: start: 201905

REACTIONS (9)
  - Condition aggravated [Not Recovered/Not Resolved]
  - Neutrophil count decreased [Unknown]
  - Pain in extremity [Not Recovered/Not Resolved]
  - White blood cell count decreased [Unknown]
  - Peripheral swelling [Not Recovered/Not Resolved]
  - Chest pain [Unknown]
  - Injection site rash [Unknown]
  - Body temperature fluctuation [Unknown]
  - Hot flush [Unknown]

NARRATIVE: CASE EVENT DATE: 2019
